FAERS Safety Report 11569638 (Version 1)
Quarter: 2015Q3

REPORT INFORMATION
  Report Type: Spontaneous
  Country: US (occurrence: None)
  Receive Date: 20150928
  Receipt Date: 20150928
  Transmission Date: 20151125
  Serious: Yes (Disabling)
  Sender: FDA-Public Use
  Company Number: None

PATIENT
  Age: 65 Year
  Sex: Female
  Weight: 74.84 kg

DRUGS (10)
  1. RITUXAN [Suspect]
     Active Substance: RITUXIMAB
     Indication: RHEUMATOID ARTHRITIS
     Dosage: 2 DOSES EVER 6 MO, INTO A VEIN
  2. GAMMAGUARD [Concomitant]
  3. LIPITOR [Concomitant]
     Active Substance: ATORVASTATIN CALCIUM
  4. DICLOPHENEC [Concomitant]
  5. LISINOPRIL/HZT [Concomitant]
  6. DILTIAZEM [Concomitant]
     Active Substance: DILTIAZEM
  7. MULTIPLE VITAMIN [Concomitant]
     Active Substance: VITAMINS
  8. INSULIN [Concomitant]
     Active Substance: INSULIN NOS
  9. OXYCODONE [Concomitant]
     Active Substance: OXYCODONE
  10. NASONEX [Concomitant]
     Active Substance: MOMETASONE FUROATE

REACTIONS (2)
  - Blood immunoglobulin G decreased [None]
  - Blood immunoglobulin M decreased [None]
